FAERS Safety Report 7679186-1 (Version None)
Quarter: 2011Q3

REPORT INFORMATION
  Report Type: 
  Country: None (occurrence: None)
  Receive Date: 20110812
  Receipt Date: 20110802
  Transmission Date: 20111222
  Serious: Yes (Life-Threatening, Other)
  Sender: FDA-Public Use
  Company Number: US-JNJFOC-20110803754

PATIENT
  Age: 67 Year
  Sex: Female

DRUGS (3)
  1. DEMEROL [Suspect]
     Indication: PANCREATITIS ACUTE
     Route: 065
  2. MORPHINE [Suspect]
     Indication: PANCREATITIS ACUTE
     Route: 065
  3. FENTANYL [Suspect]
     Indication: PANCREATITIS ACUTE
     Route: 062

REACTIONS (4)
  - RESPIRATORY ARREST [None]
  - BRAIN INJURY [None]
  - OVERDOSE [None]
  - OFF LABEL USE [None]
